FAERS Safety Report 9433208 (Version 2)
Quarter: 2013Q3

REPORT INFORMATION
  Report Type: Report from Study
  Country: JP (occurrence: JP)
  Receive Date: 20130731
  Receipt Date: 20130814
  Transmission Date: 20140515
  Serious: Yes (Death, Hospitalization)
  Sender: FDA-Public Use
  Company Number: JP-GLAXOSMITHKLINE-B0881631A

PATIENT
  Age: 42 Year
  Sex: Female
  Weight: 53 kg

DRUGS (5)
  1. VOTRIENT [Suspect]
     Indication: SOFT TISSUE CANCER
     Dosage: 400MG PER DAY
     Route: 048
     Dates: start: 20130309, end: 20130328
  2. VOTRIENT [Suspect]
     Indication: SOFT TISSUE CANCER
     Route: 048
     Dates: start: 20130411, end: 20130416
  3. GASTER D [Concomitant]
     Indication: HYPERCHLORHYDRIA
     Dosage: 20MG TWICE PER DAY
     Route: 048
     Dates: end: 20130417
  4. MUCOSTA [Concomitant]
     Dosage: 100MG THREE TIMES PER DAY
     Route: 048
     Dates: end: 20130417
  5. ALLEGRA [Concomitant]
     Route: 048

REACTIONS (5)
  - Small intestinal haemorrhage [Fatal]
  - Device related infection [Fatal]
  - Hepatic function abnormal [Recovered/Resolved]
  - Hair colour changes [Recovering/Resolving]
  - Glossitis [Recovering/Resolving]
